FAERS Safety Report 9897257 (Version 3)
Quarter: 2015Q1

REPORT INFORMATION
  Report Type: Report from Study
  Country: FR (occurrence: FR)
  Receive Date: 20140214
  Receipt Date: 20150219
  Transmission Date: 20150721
  Serious: Yes (Death, Hospitalization, Other)
  Sender: FDA-Public Use
  Company Number: FR-ROCHE-1164862

PATIENT
  Age: 69 Year
  Sex: Female

DRUGS (7)
  1. CORTANCYL [Concomitant]
     Active Substance: PREDNISONE
  2. PARACETAMOL [Concomitant]
     Active Substance: ACETAMINOPHEN
  3. METHOTREXATE [Concomitant]
     Active Substance: METHOTREXATE
  4. METHYLPREDNISOLONE. [Concomitant]
     Active Substance: METHYLPREDNISOLONE
  5. SALAZOPYRINE [Concomitant]
     Active Substance: SULFASALAZINE
  6. LEFLUNOMIDE. [Concomitant]
     Active Substance: LEFLUNOMIDE
  7. RITUXIMAB [Suspect]
     Active Substance: RITUXIMAB
     Indication: RHEUMATOID ARTHRITIS
     Route: 042

REACTIONS (10)
  - Dyspnoea [Not Recovered/Not Resolved]
  - Memory impairment [Unknown]
  - Lung infection [Fatal]
  - Pulmonary oedema [Unknown]
  - Hypertension [Recovered/Resolved]
  - Sepsis [Recovered/Resolved with Sequelae]
  - Bronchitis [Unknown]
  - Infusion related reaction [Recovered/Resolved]
  - Cardiac valve disease [Fatal]
  - Anaemia [Not Recovered/Not Resolved]

NARRATIVE: CASE EVENT DATE: 20080408
